FAERS Safety Report 8131025-0 (Version None)
Quarter: 2012Q1

REPORT INFORMATION
  Report Type: 
  Country: None (occurrence: None)
  Receive Date: 20120208
  Receipt Date: 20120208
  Transmission Date: 20120608
  Serious: Yes (Hospitalization)
  Sender: FDA-Public Use
  Company Number: None

PATIENT
  Sex: Female
  Weight: 83 kg

DRUGS (2)
  1. CARBOPLATIN [Suspect]
     Dosage: 830 MG
     Dates: end: 20120127
  2. TAXOL [Suspect]
     Dosage: 160 MG
     Dates: end: 20120127

REACTIONS (3)
  - CONSTIPATION [None]
  - FLANK PAIN [None]
  - PLEURAL EFFUSION [None]
